FAERS Safety Report 9895701 (Version 1)
Quarter: 2014Q1

REPORT INFORMATION
  Report Type: Spontaneous
  Country: US (occurrence: US)
  Receive Date: 20140213
  Receipt Date: 20140213
  Transmission Date: 20141002
  Serious: No
  Sender: FDA-Public Use
  Company Number: US-BRISTOL-MYERS SQUIBB COMPANY-18967034

PATIENT
  Age: 67 Year
  Sex: Female

DRUGS (2)
  1. ORENCIA [Suspect]
  2. KENALOG [Suspect]

REACTIONS (7)
  - Blood pressure decreased [Unknown]
  - Pruritus [Recovered/Resolved]
  - Chest discomfort [Recovered/Resolved]
  - Dysphagia [Recovered/Resolved]
  - Local swelling [Recovered/Resolved]
  - Chest pain [Recovered/Resolved]
  - Rash erythematous [Recovered/Resolved]
